FAERS Safety Report 15602482 (Version 2)
Quarter: 2019Q1

REPORT INFORMATION
  Report Type: Spontaneous
  Country: IN (occurrence: IN)
  Receive Date: 20181109
  Receipt Date: 20190103
  Transmission Date: 20190417
  Serious: Yes (Hospitalization, Other)
  Sender: FDA-Public Use
  Company Number: IN-PFIZER INC-2018432962

PATIENT
  Age: 51 Year
  Sex: Male

DRUGS (1)
  1. CHAMPIX [Suspect]
     Active Substance: VARENICLINE TARTRATE
     Indication: EX-TOBACCO USER
     Dosage: 1 MG 2 TABLETS , DAILY (STARTER PACK)
     Route: 048
     Dates: start: 20181013, end: 20181026

REACTIONS (5)
  - Cardiovascular disorder [Unknown]
  - Wound [Unknown]
  - Cyst [Unknown]
  - Cardiovascular insufficiency [Recovering/Resolving]
  - Hypoaesthesia [Unknown]
